FAERS Safety Report 4414792-9 (Version None)
Quarter: 2004Q3

REPORT INFORMATION
  Report Type: 
  Country: None (occurrence: None)
  Receive Date: 20040804
  Receipt Date: 20031007
  Transmission Date: 20050211
  Serious: No
  Sender: FDA-Public Use
  Company Number: US-BRISTOL-MYERS SQUIBB COMPANY-12405502

PATIENT
  Age: 72 Year
  Sex: Female
  Weight: 57 kg

DRUGS (2)
  1. GLUCOVANCE [Suspect]
     Indication: DIABETES MELLITUS
     Dosage: DOSE REGIMEN:  TWO TABLETS IN AM, ONE TABLET IN PM
     Route: 048
     Dates: start: 20030901
  2. NORVASC [Concomitant]

REACTIONS (1)
  - CONSTIPATION [None]
